FAERS Safety Report 12745280 (Version 1)
Quarter: 2016Q3

REPORT INFORMATION
  Report Type: Spontaneous
  Country: US (occurrence: US)
  Receive Date: 20160915
  Receipt Date: 20160915
  Transmission Date: 20161109
  Serious: No
  Sender: FDA-Public Use
  Company Number: US-TEVA-687283ACC

PATIENT
  Age: 18 Year
  Sex: Female
  Weight: 89.44 kg

DRUGS (2)
  1. PARAGARD T 380A [Suspect]
     Active Substance: COPPER
     Indication: CONTRACEPTION
     Dates: start: 20160817, end: 20160817
  2. TRINESSA [Concomitant]
     Active Substance: ETHINYL ESTRADIOL\NORGESTIMATE

REACTIONS (3)
  - Vaginal haemorrhage [Unknown]
  - Device expulsion [Unknown]
  - Chlamydia test positive [Unknown]

NARRATIVE: CASE EVENT DATE: 20160817
